FAERS Safety Report 5093897-6 (Version None)
Quarter: 2006Q3

REPORT INFORMATION
  Report Type: 
  Country: None (occurrence: None)
  Receive Date: 20060728
  Receipt Date: 20060623
  Transmission Date: 20061208
  Serious: No
  Sender: FDA-Public Use
  Company Number: 254426

PATIENT
  Age: 46 Year
  Sex: Female

DRUGS (3)
  1. LEVEMIR [Suspect]
     Indication: DIABETES MELLITUS INSULIN-DEPENDENT
     Dosage: 54 IU, QD, SUBCUTANEOUS
     Route: 058
     Dates: start: 20060621
  2. NOVOFINE 30 (NEEDLE) [Concomitant]
  3. DORYX [Concomitant]

REACTIONS (1)
  - BLOOD GLUCOSE INCREASED [None]
